FAERS Safety Report 25351310 (Version 3)
Quarter: 2025Q2

REPORT INFORMATION
  Report Type: Spontaneous
  Country: ES (occurrence: ES)
  Receive Date: 20250523
  Receipt Date: 20250617
  Transmission Date: 20250717
  Serious: Yes (Other)
  Sender: SUNOVION
  Company Number: ES-RICHTER-2025-GR-005625

PATIENT

DRUGS (2)
  1. ESTRADIOL\NORETHINDRONE ACETATE\RELUGOLIX [Suspect]
     Active Substance: ESTRADIOL\NORETHINDRONE ACETATE\RELUGOLIX
     Indication: Pelvic pain
     Route: 048
     Dates: start: 20241211, end: 20250213
  2. ESTRADIOL\NORETHINDRONE ACETATE\RELUGOLIX [Suspect]
     Active Substance: ESTRADIOL\NORETHINDRONE ACETATE\RELUGOLIX
     Indication: Product use in unapproved indication

REACTIONS (2)
  - Suicide attempt [Recovered/Resolved]
  - Product use in unapproved indication [Recovered/Resolved]

NARRATIVE: CASE EVENT DATE: 20241211
